FAERS Safety Report 5689657-5 (Version None)
Quarter: 2008Q1

REPORT INFORMATION
  Report Type: 
  Country: None (occurrence: None)
  Receive Date: 20080328
  Receipt Date: 20080325
  Transmission Date: 20080703
  Serious: Yes (Hospitalization)
  Sender: FDA-Public Use
  Company Number: SP01789

PATIENT
  Age: 74 Year
  Sex: Male

DRUGS (10)
  1. VISICOL [Suspect]
     Indication: BOWEL PREPARATION
     Dosage: 50 GM, ORAL
     Route: 048
     Dates: start: 20080109, end: 20080109
  2. VISICOL [Suspect]
     Indication: COLONOSCOPY
     Dosage: 50 GM, ORAL
     Route: 048
     Dates: start: 20080109, end: 20080109
  3. BIFIDOBACTERIUM [Concomitant]
  4. TANNALBIN [Concomitant]
  5. FOSFOMYCIN CALCIUM [Concomitant]
  6. AZOSEMIDE [Concomitant]
  7. CARBOCISTEINE [Concomitant]
  8. DIASTASE COMBINED DRUG [Concomitant]
  9. DIGESTIVE ENZYME PREPARATION [Concomitant]
  10. LEVOFLOXACIN [Concomitant]

REACTIONS (8)
  - ANAEMIA [None]
  - ANOREXIA [None]
  - BLOOD PRESSURE DECREASED [None]
  - DEHYDRATION [None]
  - HYPOALBUMINAEMIA [None]
  - KIDNEY ENLARGEMENT [None]
  - PLEURAL EFFUSION [None]
  - RENAL FAILURE ACUTE [None]
